FAERS Safety Report 5291679-3 (Version None)
Quarter: 2007Q2

REPORT INFORMATION
  Report Type: 
  Country: None (occurrence: None)
  Receive Date: 20070410
  Receipt Date: 20070329
  Transmission Date: 20071010
  Serious: Yes (Hospitalization)
  Sender: FDA-Public Use
  Company Number: PHBS2007US05781

PATIENT
  Age: 40 Year
  Sex: Female

DRUGS (6)
  1. OXCARBAZEPINE [Suspect]
     Dosage: 300 MG/DAY
     Route: 065
  2. OXCARBAZEPINE [Suspect]
     Dosage: 300 MG, BID
     Route: 065
  3. SERTRALINE [Concomitant]
     Dosage: 200 MG/DAY
     Route: 065
  4. FOSINOPRIL SODIUM [Concomitant]
     Dosage: 10 MG/DAY
     Route: 065
  5. CLONAZEPAM [Concomitant]
     Dosage: 1 MG/DAY
     Route: 065
  6. CONTRACEPTIVES NOS [Concomitant]
     Route: 048

REACTIONS (26)
  - ANXIETY [None]
  - ASTHENIA [None]
  - BLOOD PRESSURE DECREASED [None]
  - CHEST PAIN [None]
  - CHEST X-RAY ABNORMAL [None]
  - CHILLS [None]
  - CHRONIC OBSTRUCTIVE PULMONARY DISEASE [None]
  - COUGH [None]
  - DIARRHOEA [None]
  - DYSPNOEA [None]
  - EOSINOPHIL COUNT DECREASED [None]
  - EOSINOPHIL COUNT INCREASED [None]
  - HAEMATOCRIT DECREASED [None]
  - HEART RATE INCREASED [None]
  - HYPERHIDROSIS [None]
  - HYPONATRAEMIA [None]
  - LYMPHOCYTE COUNT DECREASED [None]
  - MONOCYTE COUNT INCREASED [None]
  - NEUTROPHIL COUNT INCREASED [None]
  - PANCYTOPENIA [None]
  - PLATELET COUNT DECREASED [None]
  - PYREXIA [None]
  - RASH MACULAR [None]
  - RED BLOOD CELL SEDIMENTATION RATE INCREASED [None]
  - WHEEZING [None]
  - WHITE BLOOD CELL COUNT DECREASED [None]
